FAERS Safety Report 6216077-7 (Version None)
Quarter: 2009Q2

REPORT INFORMATION
  Report Type: 
  Country: None (occurrence: None)
  Receive Date: 20090605
  Receipt Date: 20090601
  Transmission Date: 20091009
  Serious: Yes (Other)
  Sender: FDA-Public Use
  Company Number: JP-JNJFOC-20090601257

PATIENT

DRUGS (2)
  1. DUROTEP MT PATCH [Suspect]
     Route: 062
  2. DUROTEP MT PATCH [Suspect]
     Indication: PAIN
     Route: 062

REACTIONS (3)
  - DRUG INEFFECTIVE [None]
  - HYPOTENSION [None]
  - METASTASES TO BONE [None]
